FAERS Safety Report 19014825 (Version 2)
Quarter: 2021Q1

REPORT INFORMATION
  Report Type: Spontaneous
  Country: AU (occurrence: AU)
  Receive Date: 20210317
  Receipt Date: 20210324
  Transmission Date: 20210420
  Serious: Yes (Hospitalization)
  Sender: FDA-Public Use
  Company Number: AU-SAMSUNG BIOEPIS-SB-2021-06692

PATIENT
  Age: 45 Year
  Sex: Female

DRUGS (5)
  1. HYDROCORTISONE SODIUM SUCCINATE [Suspect]
     Active Substance: HYDROCORTISONE SODIUM SUCCINATE
     Indication: COLITIS ULCERATIVE
     Dosage: UNKNOWN
     Route: 042
  2. INFLIXIMAB [Suspect]
     Active Substance: INFLIXIMAB
     Dosage: UNKNOWN. THREE RESCUE DOSES ON DAY 3, 5 AND 8
     Route: 065
  3. INFLIXIMAB [Suspect]
     Active Substance: INFLIXIMAB
     Indication: COLITIS ULCERATIVE
     Route: 065
  4. MESALAZINE [Concomitant]
     Active Substance: MESALAMINE
     Indication: COLITIS ULCERATIVE
     Dosage: UNKNOWN
     Route: 065
  5. SECUKINUMAB. [Concomitant]
     Active Substance: SECUKINUMAB
     Indication: PSORIATIC ARTHROPATHY
     Dosage: UNKNOWN
     Route: 058

REACTIONS (3)
  - Therapeutic product effect incomplete [Unknown]
  - Colitis ulcerative [Recovering/Resolving]
  - Off label use [Unknown]
